FAERS Safety Report 7399890-2 (Version None)
Quarter: 2011Q2

REPORT INFORMATION
  Report Type: 
  Country: None (occurrence: None)
  Receive Date: 20110407
  Receipt Date: 20110221
  Transmission Date: 20111010
  Serious: Yes (Hospitalization, Other)
  Sender: FDA-Public Use
  Company Number: JP-BAYER-2011-008887

PATIENT
  Age: 83 Year
  Sex: Male

DRUGS (1)
  1. NEXAVAR [Suspect]
     Indication: HEPATIC NEOPLASM MALIGNANT
     Dosage: 400 MG, BID
     Route: 048
     Dates: start: 20110112, end: 20110203

REACTIONS (4)
  - BLOOD PRESSURE INCREASED [None]
  - BLOOD BILIRUBIN INCREASED [None]
  - RASH [None]
  - BILE DUCT OBSTRUCTION [None]
